FAERS Safety Report 6070089-5 (Version None)
Quarter: 2009Q1

REPORT INFORMATION
  Report Type: 
  Country: None (occurrence: None)
  Receive Date: 20090209
  Receipt Date: 20090130
  Transmission Date: 20090719
  Serious: Yes (Other)
  Sender: FDA-Public Use
  Company Number: AU-ASTRAZENECA-2009AP00888

PATIENT
  Age: 16630 Day
  Sex: Female
  Weight: 74 kg

DRUGS (2)
  1. XYLOCAINE W/ EPINEPHRINE [Suspect]
     Indication: LOCAL ANAESTHESIA
     Dosage: 1:100,000
     Route: 058
     Dates: start: 20081127, end: 20081127
  2. KEFLEX [Concomitant]
     Dates: start: 20081127, end: 20081220

REACTIONS (1)
  - EYE SWELLING [None]
